FAERS Safety Report 11141904 (Version 2)
Quarter: 2015Q2

REPORT INFORMATION
  Report Type: Spontaneous
  Country: JP (occurrence: JP)
  Receive Date: 20150527
  Receipt Date: 20150529
  Transmission Date: 20150821
  Serious: Yes (Death, Other)
  Sender: FDA-Public Use
  Company Number: JP-EISAI-201501186

PATIENT
  Age: 70 Year
  Sex: Female

DRUGS (3)
  1. ZOLPIDEM [Concomitant]
     Active Substance: ZOLPIDEM\ZOLPIDEM TARTRATE
  2. ZYPREXA [Concomitant]
     Active Substance: OLANZAPINE
  3. LUNESTA [Suspect]
     Active Substance: ESZOPICLONE
     Dosage: DOSE UNKNOWN
     Route: 048

REACTIONS (2)
  - Completed suicide [Fatal]
  - Intentional overdose [Unknown]

NARRATIVE: CASE EVENT DATE: 2015
